FAERS Safety Report 8518342-7 (Version None)
Quarter: 2012Q3

REPORT INFORMATION
  Report Type: 
  Country: None (occurrence: None)
  Receive Date: 20120718
  Receipt Date: 20120206
  Transmission Date: 20120928
  Serious: No
  Sender: FDA-Public Use
  Company Number: US-BRISTOL-MYERS SQUIBB COMPANY-16386526

PATIENT
  Age: 74 Year
  Sex: Female

DRUGS (1)
  1. COUMADIN [Suspect]
     Dosage: INCREASED TO 5MG TWICE A DAY

REACTIONS (1)
  - BLOOD VISCOSITY INCREASED [None]
